FAERS Safety Report 20277146 (Version 2)
Quarter: 2022Q1

REPORT INFORMATION
  Report Type: Spontaneous
  Country: US (occurrence: US)
  Receive Date: 20220102
  Receipt Date: 20220315
  Transmission Date: 20220423
  Serious: No
  Sender: FDA-Public Use
  Company Number: US-BRISTOL-MYERS SQUIBB COMPANY-BMS-2021-141164

PATIENT
  Age: 88 Year
  Sex: Female
  Weight: 54.422 kg

DRUGS (1)
  1. ELIQUIS [Suspect]
     Active Substance: APIXABAN
     Indication: Fibrin D dimer increased
     Dosage: 2.5 MILLIGRAM, BID
     Route: 048
     Dates: start: 20211221, end: 20220112

REACTIONS (1)
  - Blood pressure fluctuation [Unknown]

NARRATIVE: CASE EVENT DATE: 20211222
